FAERS Safety Report 24656581 (Version 2)
Quarter: 2024Q4

REPORT INFORMATION
  Report Type: Report from Study
  Country: US (occurrence: US)
  Receive Date: 20241124
  Receipt Date: 20241210
  Transmission Date: 20250115
  Serious: Yes (Hospitalization)
  Sender: ABBVIE
  Company Number: US-ABBVIE-6012121

PATIENT
  Age: 69 Year
  Sex: Female

DRUGS (1)
  1. CREON [Suspect]
     Active Substance: PANCRELIPASE AMYLASE\PANCRELIPASE LIPASE\PANCRELIPASE PROTEASE
     Indication: Product used for unknown indication
     Dosage: TIME INTERVAL: 0.125 DAYS
     Route: 048
     Dates: start: 202407, end: 20241029

REACTIONS (3)
  - Treatment noncompliance [Recovering/Resolving]
  - Dyspnoea [Unknown]
  - Melaena [Unknown]

NARRATIVE: CASE EVENT DATE: 20240101
